FAERS Safety Report 8955122 (Version 2)
Quarter: 2013Q1

REPORT INFORMATION
  Report Type: Report from Study
  Country: BE (occurrence: BE)
  Receive Date: 20121210
  Receipt Date: 20130128
  Transmission Date: 20140127
  Serious: Yes (Hospitalization, Other)
  Sender: FDA-Public Use
  Company Number: BE-BIOGENIDEC-2012BI057289

PATIENT
  Age: 36 Year
  Sex: Male

DRUGS (5)
  1. TYSABRI [Suspect]
     Indication: RELAPSING-REMITTING MULTIPLE SCLEROSIS
     Route: 042
     Dates: start: 20110111
  2. HUMALOG [Concomitant]
     Indication: DIABETES MELLITUS
  3. METFORMIN [Concomitant]
     Indication: DIABETES MELLITUS
  4. ACTRAPID [Concomitant]
     Dates: start: 20120727
  5. RANITIDINE [Concomitant]
     Indication: PROPHYLAXIS
     Dates: start: 20120727

REACTIONS (2)
  - Pneumonia aspiration [Recovered/Resolved]
  - Epilepsy [Recovered/Resolved]
